FAERS Safety Report 4770704-X (Version None)
Quarter: 2005Q3

REPORT INFORMATION
  Report Type: 
  Country: None (occurrence: None)
  Receive Date: 20050915
  Receipt Date: 20050526
  Transmission Date: 20060218
  Serious: Yes (Hospitalization, Disabling)
  Sender: FDA-Public Use
  Company Number: US-MERCK-0505USA03255

PATIENT
  Age: 69 Year
  Sex: Male
  Weight: 80 kg

DRUGS (6)
  1. VIOXX [Suspect]
     Indication: GOUT
     Route: 048
     Dates: start: 19990101, end: 20010101
  2. NORVASC [Concomitant]
     Route: 065
  3. TOPROL-XL [Concomitant]
     Route: 065
     Dates: start: 19950101, end: 20050101
  4. ECOTRIN [Concomitant]
     Route: 065
  5. ATENOLOL [Concomitant]
     Route: 065
  6. INDOCIN [Concomitant]
     Route: 065
     Dates: start: 19980101, end: 20020101

REACTIONS (7)
  - CARDIAC DISORDER [None]
  - CHEST PAIN [None]
  - DIABETES MELLITUS [None]
  - HEART RATE IRREGULAR [None]
  - HYPERTENSION [None]
  - MYOCARDIAL INFARCTION [None]
  - PAIN [None]
